FAERS Safety Report 24598148 (Version 1)
Quarter: 2024Q4

REPORT INFORMATION
  Report Type: Spontaneous
  Country: US (occurrence: US)
  Receive Date: 20241110
  Receipt Date: 20241110
  Transmission Date: 20250114
  Serious: No
  Sender: SANOFI AVENTIS
  Company Number: US-SA-2024SA310402

PATIENT
  Sex: Male

DRUGS (1)
  1. DUPIXENT [Suspect]
     Active Substance: DUPILUMAB
     Indication: Dermatitis atopic
     Dosage: 300MG EVERY 14 DAYS
     Route: 058
     Dates: start: 202306

REACTIONS (5)
  - Lacrimation increased [Recovered/Resolved]
  - Ocular hyperaemia [Recovered/Resolved]
  - Rhinorrhoea [Recovered/Resolved]
  - Eye pruritus [Recovered/Resolved]
  - Hypersensitivity [Unknown]

NARRATIVE: CASE EVENT DATE: 20240101
